FAERS Safety Report 12037081 (Version 1)
Quarter: 2016Q1

REPORT INFORMATION
  Report Type: Spontaneous
  Country: US (occurrence: None)
  Receive Date: 20160205
  Receipt Date: 20160205
  Transmission Date: 20160526
  Serious: No
  Sender: FDA-Public Use
  Company Number: None

PATIENT

DRUGS (1)
  1. AMOXICILLIN. [Suspect]
     Active Substance: AMOXICILLIN

REACTIONS (4)
  - Dysarthria [None]
  - Fatigue [None]
  - Confusional state [None]
  - Speech disorder [None]

NARRATIVE: CASE EVENT DATE: 20160121
